FAERS Safety Report 7264878-9 (Version None)
Quarter: 2011Q1

REPORT INFORMATION
  Report Type: 
  Country: None (occurrence: None)
  Receive Date: 20110131
  Receipt Date: 20101001
  Transmission Date: 20110831
  Serious: Yes (Other)
  Sender: FDA-Public Use
  Company Number: US-BAYER-201034872NA

PATIENT
  Sex: Female
  Weight: 73 kg

DRUGS (9)
  1. FERROUS SULFATE TAB [Concomitant]
  2. MOTRIN [Concomitant]
  3. PHENTERMINE [Concomitant]
     Indication: MEDICAL DIET
     Dosage: UNK
     Dates: start: 20080420
  4. UNCODEABLE ^UNCLASSIFIABLE^ [Concomitant]
  5. YAZ [Suspect]
     Indication: ORAL CONTRACEPTION
     Dosage: UNK
     Dates: start: 20050101, end: 20090101
  6. YASMIN [Suspect]
  7. OCELLA [Suspect]
  8. BYETTA [Concomitant]
  9. SYNTHROID [Concomitant]
     Dosage: UNK UNK, QD

REACTIONS (6)
  - ABDOMINAL PAIN UPPER [None]
  - CHOLECYSTITIS CHRONIC [None]
  - ABDOMINAL PAIN [None]
  - GASTROINTESTINAL DISORDER [None]
  - NAUSEA [None]
  - BACK PAIN [None]
